FAERS Safety Report 9696243 (Version 1)
Quarter: 2013Q4

REPORT INFORMATION
  Report Type: Spontaneous
  Country: ES (occurrence: ES)
  Receive Date: 20131119
  Receipt Date: 20131119
  Transmission Date: 20140711
  Serious: Yes (Hospitalization)
  Sender: FDA-Public Use
  Company Number: ES-BRISTOL-MYERS SQUIBB COMPANY-19835438

PATIENT
  Age: 78 Year
  Sex: Male

DRUGS (3)
  1. ABILIFY DISCMELT TABS 15MG [Suspect]
     Indication: MAJOR DEPRESSION
     Route: 048
     Dates: start: 201301, end: 20130131
  2. ELONTRIL [Interacting]
     Indication: MAJOR DEPRESSION
     Dosage: 150MG TO DOSE INCREASED
     Route: 048
     Dates: start: 20130110, end: 20130201
  3. ANAFRANIL [Concomitant]
     Indication: MAJOR DEPRESSION
     Route: 048
     Dates: start: 2011

REACTIONS (2)
  - Parkinsonism [Recovered/Resolved]
  - Drug interaction [Unknown]
